FAERS Safety Report 18968775 (Version 1)
Quarter: 2021Q1

REPORT INFORMATION
  Report Type: Spontaneous
  Country: MA (occurrence: MA)
  Receive Date: 20210304
  Receipt Date: 20210304
  Transmission Date: 20210420
  Serious: Yes (Death, Hospitalization)
  Sender: FDA-Public Use
  Company Number: MA-MYLANLABS-2021M1012747

PATIENT
  Age: 63 Year
  Sex: Male

DRUGS (1)
  1. ACICLOVIR [Suspect]
     Active Substance: ACYCLOVIR
     Indication: VARICELLA ZOSTER PNEUMONIA
     Dosage: 10 MILLIGRAM/KILOGRAM, Q8H
     Route: 065

REACTIONS (1)
  - Drug ineffective [Fatal]
